FAERS Safety Report 13844093 (Version 1)
Quarter: 2017Q3

REPORT INFORMATION
  Report Type: Report from Study
  Country: US (occurrence: US)
  Receive Date: 20170808
  Receipt Date: 20170808
  Transmission Date: 20171127
  Serious: Yes (Hospitalization, Other)
  Sender: FDA-Public Use
  Company Number: US-VIFOR (INTERNATIONAL) INC.-VIT-2017-08299

PATIENT
  Sex: Male

DRUGS (13)
  1. FERROUS SULFATE. [Concomitant]
     Active Substance: FERROUS SULFATE
  2. ACETYLSALICYLIC ACID [Concomitant]
     Active Substance: ASPIRIN
     Dates: start: 20160323, end: 20170726
  3. SODIUM POLYSTYRENE SULFONATE. [Concomitant]
     Active Substance: SODIUM POLYSTYRENE SULFONATE
  4. GABAPENTIN. [Concomitant]
     Active Substance: GABAPENTIN
  5. TERAZOSIN HYDROCHLORIDE. [Concomitant]
     Active Substance: TERAZOSIN HYDROCHLORIDE
  6. PROTONIX [Concomitant]
     Active Substance: PANTOPRAZOLE SODIUM
  7. BUMETANIDE. [Concomitant]
     Active Substance: BUMETANIDE
  8. POTASSIUM CHLORIDE. [Concomitant]
     Active Substance: POTASSIUM CHLORIDE
  9. METOLAZONE. [Concomitant]
     Active Substance: METOLAZONE
  10. COREG [Concomitant]
     Active Substance: CARVEDILOL
  11. VELTASSA [Suspect]
     Active Substance: PATIROMER
     Indication: HYPERKALAEMIA
     Route: 048
     Dates: start: 20160404, end: 20170726
  12. PROCARDIA [Concomitant]
     Active Substance: NIFEDIPINE
  13. NOVOLIN N [Concomitant]
     Active Substance: INSULIN HUMAN

REACTIONS (3)
  - Diabetes mellitus [Unknown]
  - Oedema peripheral [Unknown]
  - Hospitalisation [Unknown]
